FAERS Safety Report 4556408-7 (Version None)
Quarter: 2005Q1

REPORT INFORMATION
  Report Type: 
  Country: None (occurrence: None)
  Receive Date: 20050114
  Receipt Date: 20050106
  Transmission Date: 20050727
  Serious: Yes (Hospitalization)
  Sender: FDA-Public Use
  Company Number: 2005CG00059

PATIENT
  Age: 71 Year
  Sex: Male

DRUGS (8)
  1. ATACAND [Suspect]
     Dates: end: 20041121
  2. CORDARONE [Suspect]
     Dosage: 200 MG QD PO
     Route: 048
     Dates: end: 20041121
  3. FLOXYFRAL [Suspect]
     Dates: end: 20041121
  4. ANAESTHETICS [Suspect]
     Dates: start: 20041122, end: 20041122
  5. CORVASAL [Concomitant]
  6. PREVISCAN [Concomitant]
  7. PERMIXON [Concomitant]
  8. MUCOMYST [Concomitant]

REACTIONS (3)
  - CORONARY ARTERY SURGERY [None]
  - DRUG INTERACTION [None]
  - PROCEDURAL HYPOTENSION [None]
